FAERS Safety Report 11882197 (Version 1)
Quarter: 2015Q4

REPORT INFORMATION
  Report Type: Spontaneous
  Country: CH (occurrence: CH)
  Receive Date: 20151231
  Receipt Date: 20151231
  Transmission Date: 20160305
  Serious: Yes (Other)
  Sender: FDA-Public Use
  Company Number: CH-SA-2015SA221310

PATIENT
  Age: 81 Year
  Sex: Female

DRUGS (10)
  1. ZYLORIC [Suspect]
     Active Substance: ALLOPURINOL
     Indication: GOUT
     Route: 048
     Dates: start: 2012, end: 20151207
  2. IRFEN [Suspect]
     Active Substance: IBUPROFEN
     Indication: CHEST PAIN
     Route: 048
     Dates: start: 20151201, end: 20151201
  3. NEXIUM [Concomitant]
     Active Substance: ESOMEPRAZOLE MAGNESIUM
     Indication: GASTROOESOPHAGEAL REFLUX DISEASE
     Route: 048
  4. ZOLPIDEM [Concomitant]
     Active Substance: ZOLPIDEM\ZOLPIDEM TARTRATE
     Indication: INSOMNIA
     Route: 048
  5. CLEXANE [Suspect]
     Active Substance: ENOXAPARIN SODIUM
     Indication: VENOUS THROMBOSIS
     Route: 058
     Dates: start: 20151201, end: 20151214
  6. TORASEMID [Concomitant]
     Active Substance: TORSEMIDE
     Indication: OEDEMA
     Route: 048
  7. TRAMADOL. [Concomitant]
     Active Substance: TRAMADOL
     Indication: PAIN
     Route: 048
     Dates: start: 20151119, end: 20151120
  8. DAFALGAN [Concomitant]
     Active Substance: ACETAMINOPHEN
     Indication: PAIN
     Route: 048
  9. XGEVA [Concomitant]
     Active Substance: DENOSUMAB
     Indication: LUNG CANCER METASTATIC
     Route: 058
  10. COLCHICINE. [Concomitant]
     Active Substance: COLCHICINE
     Indication: GOUT
     Route: 048
     Dates: start: 20151124, end: 20151129

REACTIONS (1)
  - Eczema [Recovering/Resolving]

NARRATIVE: CASE EVENT DATE: 20151206
